FAERS Safety Report 9943109 (Version 2)
Quarter: 2014Q2

REPORT INFORMATION
  Report Type: Spontaneous
  Country: US (occurrence: US)
  Receive Date: 20140303
  Receipt Date: 20140402
  Transmission Date: 20141212
  Serious: Yes (Other)
  Sender: FDA-Public Use
  Company Number: CHPA2014US003249

PATIENT
  Sex: Female

DRUGS (1)
  1. VOLTAREN GEL [Suspect]
     Indication: OSTEOARTHRITIS
     Dosage: 2G OR 4G, BID
     Route: 061

REACTIONS (3)
  - Blood glucose increased [Recovering/Resolving]
  - Underdose [Unknown]
  - Wrong technique in drug usage process [Unknown]
